FAERS Safety Report 11178041 (Version 1)
Quarter: 2015Q2

REPORT INFORMATION
  Report Type: Spontaneous
  Country: US (occurrence: None)
  Receive Date: 20150515
  Receipt Date: 20150515
  Transmission Date: 20150821
  Serious: Yes (Other)
  Sender: FDA-Public Use
  Company Number: 2015004792

PATIENT
  Age: 45 Year
  Sex: Female
  Weight: 91 kg

DRUGS (2)
  1. LISINOPRIL (LISINOPRIL) [Concomitant]
     Active Substance: LISINOPRIL
  2. CIMZIA [Suspect]
     Active Substance: CERTOLIZUMAB PEGOL
     Indication: CROHN^S DISEASE
     Dosage: PRE-FILLED SYRINGE
     Route: 058
     Dates: start: 2012, end: 20150130

REACTIONS (3)
  - Bronchitis [None]
  - Pneumonia [None]
  - Off label use [None]

NARRATIVE: CASE EVENT DATE: 2012
